FAERS Safety Report 11347519 (Version 1)
Quarter: 2015Q3

REPORT INFORMATION
  Report Type: Spontaneous
  Country: US (occurrence: US)
  Receive Date: 20150803
  Receipt Date: 20150803
  Transmission Date: 20151125
  Serious: No
  Sender: FDA-Public Use
  Company Number: US-ELI_LILLY_AND_COMPANY-US201106000140

PATIENT
  Age: 49 Year
  Sex: Female

DRUGS (5)
  1. KLONOPIN [Concomitant]
     Active Substance: CLONAZEPAM
  2. ZYPREXA [Suspect]
     Active Substance: OLANZAPINE
     Dosage: 7.5 MG, QD
     Dates: start: 201105, end: 201105
  3. ZYPREXA [Suspect]
     Active Substance: OLANZAPINE
     Dosage: 3.75 MG, QD
     Dates: start: 201105, end: 20110524
  4. AMBIEN [Concomitant]
     Active Substance: ZOLPIDEM TARTRATE
  5. ZYPREXA [Suspect]
     Active Substance: OLANZAPINE
     Indication: BIPOLAR DISORDER
     Dosage: 15 MG, QD
     Dates: start: 201105, end: 201105

REACTIONS (5)
  - Insomnia [Not Recovered/Not Resolved]
  - Emotional poverty [Not Recovered/Not Resolved]
  - Hyperhidrosis [Unknown]
  - Drug withdrawal syndrome [Unknown]
  - Wrong technique in product usage process [Recovered/Resolved]

NARRATIVE: CASE EVENT DATE: 201105
